FAERS Safety Report 5988434-5 (Version None)
Quarter: 2008Q4

REPORT INFORMATION
  Report Type: 
  Country: None (occurrence: None)
  Receive Date: 20081210
  Receipt Date: 20081202
  Transmission Date: 20090506
  Serious: Yes (Hospitalization, Other)
  Sender: FDA-Public Use
  Company Number: JP-BRISTOL-MYERS SQUIBB COMPANY-14389019

PATIENT
  Age: 59 Year
  Sex: Female
  Weight: 41 kg

DRUGS (16)
  1. ABILIFY [Suspect]
     Indication: SCHIZOPHRENIA
     Route: 048
     Dates: start: 20080902
  2. ZYPREXA [Suspect]
     Indication: SCHIZOPHRENIA
     Dosage: FORMULATION - TABS
     Route: 048
     Dates: start: 20080101, end: 20080925
  3. PANTHENOL [Concomitant]
     Dosage: FORMULATION -INJECTION
     Dates: start: 20080912, end: 20080925
  4. PROSTARMON F [Concomitant]
     Dosage: FORMULATION -INJECTION
     Dates: start: 20080909, end: 20080927
  5. FLUITRAN [Concomitant]
     Dosage: FORMULATION -TABLETS
  6. DIOVAN [Concomitant]
     Dosage: FORMULATION -TABLETS
  7. NORVASC [Concomitant]
     Dosage: FORMULATION -TABLET
  8. CHLORPROMAZINE HCL [Concomitant]
  9. COLONEL [Concomitant]
     Dates: end: 20081116
  10. MAGNESIUM OXIDE [Concomitant]
     Dates: end: 20081116
  11. RHUBARB + SALICYLIC ACID [Concomitant]
     Dosage: FORMULATION - POWDER
     Dates: end: 20081116
  12. GASCON [Concomitant]
     Dates: end: 20081116
  13. BENZALIN [Concomitant]
     Dates: end: 20081116
  14. ZOPICOOL [Concomitant]
     Dosage: FORMULATION -TABLET
  15. DEPAS [Concomitant]
  16. SODIUM PICOSULFATE [Concomitant]
     Dates: end: 20081010

REACTIONS (2)
  - ILEUS [None]
  - WEIGHT DECREASED [None]
